FAERS Safety Report 23158930 (Version 1)
Quarter: 2023Q4

REPORT INFORMATION
  Report Type: Spontaneous
  Country: US (occurrence: None)
  Receive Date: 20231107
  Receipt Date: 20231107
  Transmission Date: 20240109
  Serious: No
  Sender: FDA-Public Use
  Company Number: None

PATIENT
  Age: 77 Year
  Sex: Female

DRUGS (1)
  1. HUMIRA [Suspect]
     Active Substance: ADALIMUMAB
     Indication: Rheumatoid arthritis
     Dosage: INJECT40MG SUBCUTANEOUSLY ONCE WEEKLY AS DIRECTED.
     Route: 058
     Dates: start: 202301

REACTIONS (2)
  - Impaired healing [None]
  - Therapy interrupted [None]
